FAERS Safety Report 5209364-2 (Version None)
Quarter: 2006Q4

REPORT INFORMATION
  Report Type: 
  Country: None (occurrence: None)
  Receive Date: 20061101
  Receipt Date: 20060908
  Transmission Date: 20070319
  Serious: No
  Sender: FDA-Public Use
  Company Number: SPV1-2006-00730

PATIENT
  Sex: Male

DRUGS (1)
  1. FOSRENOL [Suspect]
     Dates: start: 20060301

REACTIONS (1)
  - COMPUTERISED TOMOGRAM ABNORMAL [None]
